FAERS Safety Report 16333264 (Version 3)
Quarter: 2019Q2

REPORT INFORMATION
  Report Type: Spontaneous
  Country: DE (occurrence: DE)
  Receive Date: 20190520
  Receipt Date: 20190520
  Transmission Date: 20190711
  Serious: Yes (Other)
  Sender: FDA-Public Use
  Company Number: PHHY2019DE110892

PATIENT
  Age: 67 Year

DRUGS (29)
  1. RITUXIMAB. [Suspect]
     Active Substance: RITUXIMAB
     Dosage: UNK (2 CYCLES TOGETHER WITH BENDAMUSTINE)
     Route: 065
     Dates: start: 201812
  2. TOCILIZUMAB. [Suspect]
     Active Substance: TOCILIZUMAB
     Indication: DIFFUSE LARGE B-CELL LYMPHOMA
     Dosage: UNK
     Route: 065
  3. CYTARABINE. [Suspect]
     Active Substance: CYTARABINE
     Indication: DIFFUSE LARGE B-CELL LYMPHOMA
     Dosage: UNK (2 CYCLES TOGETHER WITH RITUXIMAB)
     Route: 065
     Dates: start: 201804
  4. CYCLOPHOSPHAMIDE. [Suspect]
     Active Substance: CYCLOPHOSPHAMIDE
     Dosage: UNK (6 CYCLES TOGETHER WITH RITUXIMAB)
     Route: 065
     Dates: start: 201802
  5. RITUXIMAB. [Suspect]
     Active Substance: RITUXIMAB
     Dosage: UNK (6 CYCLES TOGETHER WITH CHOEP)
     Route: 065
     Dates: start: 201710
  6. PREDNISOLONE. [Suspect]
     Active Substance: PREDNISOLONE
     Indication: DIFFUSE LARGE B-CELL LYMPHOMA
     Dosage: UNK (6 CYCLE WITH RITUXIMAB)
     Route: 065
     Dates: start: 201710
  7. VINCRISTINE [Suspect]
     Active Substance: VINCRISTINE
     Indication: DIFFUSE LARGE B-CELL LYMPHOMA
     Dosage: UNK (6 CYCLE WITH RITUXIMAB)
     Route: 065
     Dates: start: 201710
  8. DEXAMETHASONE. [Suspect]
     Active Substance: DEXAMETHASONE
     Indication: DIFFUSE LARGE B-CELL LYMPHOMA
     Dosage: UNK (2 CYCYES TOGETHER WITH RITUXIMAB)
     Route: 065
     Dates: start: 201804, end: 201805
  9. DOXORUBICIN [Suspect]
     Active Substance: DOXORUBICIN
     Dosage: UNK (6 CYCLES TOGETHER WITH RITUXIMAB)
     Route: 065
     Dates: start: 201802
  10. BENDAMUSTINE [Suspect]
     Active Substance: BENDAMUSTINE
     Indication: DIFFUSE LARGE B-CELL LYMPHOMA
     Dosage: UNK (2 CYCLES TOGETHER WITH RITUXIMAB)
     Route: 065
     Dates: start: 201811
  11. CISPLATIN. [Suspect]
     Active Substance: CISPLATIN
     Dosage: UNK (2 CYCLES TOGETHER WITH RITUXIMAB)
     Route: 065
     Dates: start: 201805
  12. DEXAMETHASONE. [Suspect]
     Active Substance: DEXAMETHASONE
     Dosage: 4 MG, QD (IN TOTAL)
     Route: 065
  13. RITUXIMAB. [Suspect]
     Active Substance: RITUXIMAB
     Dosage: UNK (TOGETHER WITH DHAP)
     Route: 065
     Dates: start: 201804, end: 201805
  14. RITUXIMAB. [Suspect]
     Active Substance: RITUXIMAB
     Dosage: UNK (2 CYCLES TOGETHER WITH BENDAMUSTINE)
     Route: 065
     Dates: start: 201811
  15. BENDAMUSTINE [Suspect]
     Active Substance: BENDAMUSTINE
     Dosage: UNK (2 CYCLES TOGETHER WITH RITUXIMAB)
     Route: 065
     Dates: start: 201812
  16. CYCLOPHOSPHAMIDE. [Suspect]
     Active Substance: CYCLOPHOSPHAMIDE
     Indication: DIFFUSE LARGE B-CELL LYMPHOMA
     Dosage: UNK (TOGETHER WITH FLUDARABIN IN ZUMA 1 TRAIL)
     Route: 065
  17. VINCRISTINE [Suspect]
     Active Substance: VINCRISTINE
     Dosage: UNK (6 CYCLE WITH RITUXIMAB)
     Route: 065
     Dates: start: 201802
  18. IBRUTINIB [Concomitant]
     Active Substance: IBRUTINIB
     Indication: DIFFUSE LARGE B-CELL LYMPHOMA
     Dosage: 560 MG, UNK
     Route: 065
  19. PREDNISOLONE. [Suspect]
     Active Substance: PREDNISOLONE
     Dosage: UNK (6 CYCLE WITH RITUXIMAB)
     Route: 065
     Dates: start: 201802
  20. DOXORUBICIN [Suspect]
     Active Substance: DOXORUBICIN
     Indication: DIFFUSE LARGE B-CELL LYMPHOMA
     Dosage: UNK (6 CYCLES TOGETHER WITH RITUXIMAB)
     Route: 065
     Dates: start: 201711
  21. IFOSFAMIDE. [Suspect]
     Active Substance: IFOSFAMIDE
     Indication: DIFFUSE LARGE B-CELL LYMPHOMA
     Dosage: 2000 MG/M2, UNK
     Route: 065
  22. CYTARABINE. [Suspect]
     Active Substance: CYTARABINE
     Dosage: UNK (2 CYCLES TOGETHER WITH RITUXIMAB)
     Route: 065
     Dates: start: 201805
  23. CISPLATIN. [Suspect]
     Active Substance: CISPLATIN
     Indication: DIFFUSE LARGE B-CELL LYMPHOMA
     Dosage: UNK (2 CYCLES TOGETHER WITH RITUXIMAB)
     Route: 065
     Dates: start: 201804
  24. CYCLOPHOSPHAMIDE. [Suspect]
     Active Substance: CYCLOPHOSPHAMIDE
     Dosage: UNK (6 CYCLES TOGETHER WITH RITUXIMAB)
     Route: 065
     Dates: start: 201710
  25. RITUXIMAB. [Suspect]
     Active Substance: RITUXIMAB
     Indication: DIFFUSE LARGE B-CELL LYMPHOMA
     Dosage: 375 MG/M2, UNK
     Route: 065
  26. RITUXIMAB. [Suspect]
     Active Substance: RITUXIMAB
     Dosage: UNK (6 CYCLES TOGETHER WITH CHOEP)
     Route: 065
     Dates: start: 201802
  27. FLUDARABINE [Suspect]
     Active Substance: FLUDARABINE PHOSPHATE
     Indication: DIFFUSE LARGE B-CELL LYMPHOMA
     Dosage: UNK (TOGETHER WITH CYCLOPHOSPHAMIDE IN ZUMA 1 TRIAL)
     Route: 065
  28. METHOTREXATE. [Suspect]
     Active Substance: METHOTREXATE
     Indication: DIFFUSE LARGE B-CELL LYMPHOMA
     Dosage: 4000 MG/M2, UNK
     Route: 065
  29. THIOTEPA. [Suspect]
     Active Substance: THIOTEPA
     Indication: DIFFUSE LARGE B-CELL LYMPHOMA
     Dosage: 40 MG/M2, UNK
     Route: 065

REACTIONS (3)
  - Acute kidney injury [Unknown]
  - Cytokine release syndrome [Unknown]
  - Hypotension [Unknown]

NARRATIVE: CASE EVENT DATE: 201808
